FAERS Safety Report 4377172-0 (Version None)
Quarter: 2004Q2

REPORT INFORMATION
  Report Type: 
  Country: None (occurrence: None)
  Receive Date: 20040608
  Receipt Date: 20040602
  Transmission Date: 20050107
  Serious: Yes (Life-Threatening, Hospitalization, Other)
  Sender: FDA-Public Use
  Company Number: HQWYE251604JUN04

PATIENT
  Age: 49 Year
  Sex: Female

DRUGS (7)
  1. RAPAMUNE [Suspect]
     Indication: PROPHYLAXIS AGAINST TRANSPLANT REJECTION
     Dosage: 2 MG 1 X PER 1 DAY, ORAL
     Route: 048
     Dates: start: 19990321
  2. DIAPREL (GLICLAZIDE) [Concomitant]
  3. ISOSORBIDE MONONITRATE [Concomitant]
  4. KALIPOZ-PROLONGATUM (POTASSIUIM CHLORIDE) [Concomitant]
  5. SORTIS ^GOEDECKE^ (ATORVASTATIN CALCIUM) [Concomitant]
  6. ENCORTON (PREDNISONE ACETATE) [Concomitant]
  7. CALCIFEDIOL (CALCIFEDIOL) [Concomitant]

REACTIONS (9)
  - BLOOD PRESSURE INCREASED [None]
  - CONDITION AGGRAVATED [None]
  - LEFT VENTRICULAR FAILURE [None]
  - PLATELET COUNT DECREASED [None]
  - PULMONARY OEDEMA [None]
  - SCAR [None]
  - TROPONIN INCREASED [None]
  - VENTRICULAR DYSKINESIA [None]
  - WHITE BLOOD CELL COUNT INCREASED [None]
